FAERS Safety Report 9736442 (Version 1)
Quarter: 2013Q4

REPORT INFORMATION
  Report Type: Report from Study
  Country: US (occurrence: US)
  Receive Date: 20131206
  Receipt Date: 20131206
  Transmission Date: 20140711
  Serious: Yes (Hospitalization)
  Sender: FDA-Public Use
  Company Number: US-ALEXION-A201303700

PATIENT
  Age: 3 Year
  Sex: Male
  Weight: 18 kg

DRUGS (5)
  1. ECULIZUMAB [Suspect]
     Indication: HAEMOLYTIC URAEMIC SYNDROME
     Dosage: 300 MG, Q2W
     Route: 042
     Dates: start: 20100111
  2. ECULIZUMAB [Suspect]
     Dosage: 300 MG, Q2W
     Route: 042
     Dates: start: 20121019
  3. COZAAR [Concomitant]
     Dosage: 3.75 MG, QD
     Route: 048
  4. POLY-VI-SOL [Concomitant]
     Dosage: 1 ML, QD
     Route: 048
  5. IRON [Concomitant]
     Dosage: 1 ML, QD
     Route: 048

REACTIONS (1)
  - Leukopenia [Not Recovered/Not Resolved]
